FAERS Safety Report 24292605 (Version 1)
Quarter: 2024Q3

REPORT INFORMATION
  Report Type: Spontaneous
  Country: BR (occurrence: BR)
  Receive Date: 20240906
  Receipt Date: 20240906
  Transmission Date: 20241017
  Serious: Yes (Death, Other)
  Sender: DAIICHI
  Company Number: BR-DAIICHI SANKYO, INC.-DSE-2024-143814

PATIENT
  Sex: Female

DRUGS (1)
  1. ENHERTU [Suspect]
     Active Substance: FAM-TRASTUZUMAB DERUXTECAN-NXKI
     Indication: HER2 low breast cancer
     Dosage: UNK
     Route: 065

REACTIONS (4)
  - Death [Fatal]
  - Gastrointestinal neoplasm [Unknown]
  - Alopecia [Unknown]
  - Nausea [Unknown]
